FAERS Safety Report 16259665 (Version 1)
Quarter: 2019Q2

REPORT INFORMATION
  Report Type: Report from Study
  Country: KR (occurrence: KR)
  Receive Date: 20190501
  Receipt Date: 20190501
  Transmission Date: 20190711
  Serious: Yes (Hospitalization, Other)
  Sender: FDA-Public Use
  Company Number: KR-JNJFOC-20190425063

PATIENT
  Sex: Female

DRUGS (3)
  1. DOXORUBICIN [Suspect]
     Active Substance: DOXORUBICIN
     Indication: BREAST CANCER
     Dosage: RECEIVED 4 CYCLES
     Route: 042
  2. PEGTEOGRASTIM [Suspect]
     Active Substance: PEGTEOGRASTIM
     Indication: BREAST CANCER
     Dosage: ON DAY 2 OF EACH CHEMOTHERAPY CYCLE
     Route: 058
  3. CYCLOPHOSPHAMIDE. [Suspect]
     Active Substance: CYCLOPHOSPHAMIDE
     Indication: BREAST CANCER
     Dosage: RECEIVED 4 CYCLES
     Route: 042

REACTIONS (25)
  - Neutropenia [Unknown]
  - Anaemia [Unknown]
  - Febrile neutropenia [Unknown]
  - Cough [Unknown]
  - Dizziness [Unknown]
  - Transaminases increased [Unknown]
  - Vomiting [Unknown]
  - Mucosal inflammation [Unknown]
  - Dyspepsia [Unknown]
  - Insomnia [Unknown]
  - Stomatitis [Unknown]
  - Myalgia [Unknown]
  - Lymphopenia [Unknown]
  - Bone pain [Unknown]
  - Constipation [Unknown]
  - Thrombocytopenia [Unknown]
  - Pneumonia [Unknown]
  - Alopecia [Unknown]
  - Nausea [Unknown]
  - Infection [Unknown]
  - Decreased appetite [Unknown]
  - Wound infection [Unknown]
  - Asthenia [Unknown]
  - Pain [Unknown]
  - Diarrhoea [Unknown]
